FAERS Safety Report 12559749 (Version 1)
Quarter: 2016Q3

REPORT INFORMATION
  Report Type: Spontaneous
  Country: US (occurrence: US)
  Receive Date: 20160715
  Receipt Date: 20160715
  Transmission Date: 20161109
  Serious: No
  Sender: FDA-Public Use
  Company Number: US-JNJFOC-20160500929

PATIENT
  Age: 78 Year
  Sex: Female
  Weight: 81.65 kg

DRUGS (2)
  1. PEPCID AC [Suspect]
     Active Substance: FAMOTIDINE
     Route: 061
  2. PEPCID AC [Suspect]
     Active Substance: FAMOTIDINE
     Indication: DYSPEPSIA
     Dosage: 1 TABLET
     Route: 061
     Dates: start: 20160429, end: 20160429

REACTIONS (1)
  - Oral mucosal eruption [Not Recovered/Not Resolved]

NARRATIVE: CASE EVENT DATE: 20160429
